FAERS Safety Report 6611996-1 (Version None)
Quarter: 2010Q1

REPORT INFORMATION
  Report Type: 
  Country: None (occurrence: None)
  Receive Date: 20100303
  Receipt Date: 20100222
  Transmission Date: 20100710
  Serious: Yes (Other)
  Sender: FDA-Public Use
  Company Number: GXKR2010IN02151

PATIENT
  Age: 7 Year
  Sex: Male

DRUGS (4)
  1. ETHAMBUTOL (NGX) [Suspect]
     Indication: MENINGITIS TUBERCULOUS
     Route: 065
  2. ISONIAZID [Suspect]
     Indication: MENINGITIS TUBERCULOUS
     Route: 065
  3. PYRAZINAMIDE [Suspect]
     Indication: MENINGITIS TUBERCULOUS
     Route: 065
  4. RIFAMPICIN [Suspect]
     Indication: MENINGITIS TUBERCULOUS
     Route: 065

REACTIONS (7)
  - ATAXIA [None]
  - EYELID PTOSIS [None]
  - GAIT DISTURBANCE [None]
  - HEADACHE [None]
  - PARADOXICAL DRUG REACTION [None]
  - PYREXIA [None]
  - TUBERCULOMA OF CENTRAL NERVOUS SYSTEM [None]
